FAERS Safety Report 8920811 (Version 2)
Quarter: 2013Q1

REPORT INFORMATION
  Report Type: Spontaneous
  Country: US (occurrence: US)
  Receive Date: 20121121
  Receipt Date: 20130111
  Transmission Date: 20140127
  Serious: Yes (Hospitalization)
  Sender: FDA-Public Use
  Company Number: US-ALLERGAN-1214482US

PATIENT
  Age: 60 Year
  Sex: Male

DRUGS (2)
  1. BOTOX COSMETIC [Suspect]
     Indication: SKIN COSMETIC PROCEDURE
     Dosage: UNK UNK, SINGLE
     Route: 030
     Dates: start: 2011, end: 2011
  2. JUVEDERM ULTRA PLUS XL [Concomitant]
     Indication: SKIN COSMETIC PROCEDURE
     Dosage: UNK
     Dates: start: 20111104

REACTIONS (1)
  - Squamous cell carcinoma [Not Recovered/Not Resolved]
